FAERS Safety Report 23411244 (Version 1)
Quarter: 2024Q1

REPORT INFORMATION
  Report Type: Spontaneous
  Country: US (occurrence: US)
  Receive Date: 20240117
  Receipt Date: 20240117
  Transmission Date: 20240409
  Serious: No
  Sender: FDA-Public Use
  Company Number: US-FERRINGPH-2023FE02651

PATIENT
  Age: 45 Year
  Sex: Female

DRUGS (1)
  1. CLENPIQ [Suspect]
     Active Substance: ANHYDROUS CITRIC ACID\MAGNESIUM OXIDE\SODIUM PICOSULFATE
     Indication: Bowel preparation
     Dosage: 2 BOTTLES
     Route: 065

REACTIONS (7)
  - Anxiety [Unknown]
  - Stress [Unknown]
  - Contusion [Unknown]
  - Pain in extremity [Unknown]
  - Blister [Unknown]
  - Crying [Unknown]
  - Product packaging difficult to open [Unknown]
